FAERS Safety Report 13458083 (Version 1)
Quarter: 2017Q2

REPORT INFORMATION
  Report Type: Spontaneous
  Country: IT (occurrence: IT)
  Receive Date: 20170419
  Receipt Date: 20170419
  Transmission Date: 20170830
  Serious: Yes (Hospitalization)
  Sender: FDA-Public Use
  Company Number: IT-ROCHE-1922011

PATIENT
  Age: 54 Year
  Sex: Male

DRUGS (3)
  1. CELLCEPT [Concomitant]
     Active Substance: MYCOPHENOLATE MOFETIL\MYCOPHENOLATE MOFETIL HYDROCHLORIDE
     Dosage: 50 TABLETS 500 MG
     Route: 065
  2. MABTHERA [Suspect]
     Active Substance: RITUXIMAB
     Indication: GRANULOMATOSIS WITH POLYANGIITIS
     Dosage: 1 VIAL 500 MG 50 ML, CYCLICAL
     Route: 041
     Dates: start: 20170329, end: 20170407
  3. DELTACORTENE [Concomitant]
     Active Substance: PREDNISONE
     Dosage: ^5 MG TABLETS^ 10 TABLETS
     Route: 065

REACTIONS (2)
  - Pneumonitis [Recovering/Resolving]
  - Hyperpyrexia [Recovering/Resolving]

NARRATIVE: CASE EVENT DATE: 20170410
